FAERS Safety Report 9322997 (Version 1)
Quarter: 2013Q2

REPORT INFORMATION
  Report Type: Spontaneous
  Country: FR (occurrence: FR)
  Receive Date: 20130603
  Receipt Date: 20130603
  Transmission Date: 20140414
  Serious: Yes (Hospitalization)
  Sender: FDA-Public Use
  Company Number: FR-ROCHE-1230668

PATIENT
  Age: 1 Year
  Sex: Female
  Weight: 9.4 kg

DRUGS (4)
  1. VALIUM [Suspect]
     Indication: EPILEPSY
     Route: 054
     Dates: start: 20130314, end: 20130314
  2. DOLIPRANE [Concomitant]
  3. RIVOTRIL [Concomitant]
     Route: 042
  4. ROCEPHINE [Concomitant]
     Dosage: 10 MG/KG (SINGLE DOSE)
     Route: 065

REACTIONS (3)
  - Oxygen saturation decreased [Recovered/Resolved]
  - Cyanosis [Recovered/Resolved]
  - Respiratory disorder [Recovered/Resolved]
